FAERS Safety Report 20319018 (Version 5)
Quarter: 2022Q2

REPORT INFORMATION
  Report Type: Spontaneous
  Country: US (occurrence: US)
  Receive Date: 20220110
  Receipt Date: 20220524
  Transmission Date: 20220721
  Serious: Yes (Hospitalization, Other)
  Sender: FDA-Public Use
  Company Number: US-GLAXOSMITHKLINE-USCH2021AMR092938

PATIENT

DRUGS (22)
  1. DEXTROMETHORPHAN HYDROBROMIDE [Suspect]
     Active Substance: DEXTROMETHORPHAN HYDROBROMIDE
     Indication: Drug interaction
     Dosage: 30 MG, DAY -7, 1, 14
     Route: 048
     Dates: start: 20211025, end: 20211115
  2. CAFFEINE [Suspect]
     Active Substance: CAFFEINE
     Indication: Drug interaction
     Dosage: UNK (100 MG/5 ML) (DAY -7, 1, 14)
     Route: 048
     Dates: start: 20211025, end: 20211115
  3. IBUPROFEN [Suspect]
     Active Substance: IBUPROFEN
     Indication: Pain
     Dosage: UNK
  4. OMEPRAZOLE [Suspect]
     Active Substance: OMEPRAZOLE
     Indication: Drug interaction
     Dosage: 20 MG, DAY -7, 1, 14
     Route: 048
     Dates: start: 20211025, end: 20211115
  5. ENCORAFENIB [Suspect]
     Active Substance: ENCORAFENIB
     Indication: Metastatic malignant melanoma
     Dosage: 300 MG, QD
     Route: 048
     Dates: start: 20211101, end: 20211228
  6. BINIMETINIB [Suspect]
     Active Substance: BINIMETINIB
     Indication: Metastatic malignant melanoma
     Dosage: 30 MG, BID
     Route: 048
     Dates: start: 20211101, end: 20211228
  7. LOSARTAN [Suspect]
     Active Substance: LOSARTAN
     Indication: Drug interaction
     Dosage: 25 MG, DAY -7, 1, 14
     Route: 048
     Dates: start: 20211025, end: 20211115
  8. MIDAZOLAM [Suspect]
     Active Substance: MIDAZOLAM
     Indication: Drug interaction
     Dosage: 2 MG/ML, DAY -7, 1, 14
     Route: 048
     Dates: start: 20211025, end: 20211115
  9. PEMBROLIZUMAB [Suspect]
     Active Substance: PEMBROLIZUMAB
     Indication: Malignant melanoma
     Dosage: UNK
     Dates: start: 20210804
  10. PEMBROLIZUMAB [Suspect]
     Active Substance: PEMBROLIZUMAB
     Dosage: UNK
     Dates: start: 20210825
  11. PEMBROLIZUMAB [Suspect]
     Active Substance: PEMBROLIZUMAB
     Dosage: UNK
     Dates: start: 20210915
  12. TYLENOL [Concomitant]
     Active Substance: ACETAMINOPHEN
     Indication: Pain
     Dosage: 325 MG,QSH PRN
     Route: 048
     Dates: start: 20211229
  13. TYLENOL [Concomitant]
     Active Substance: ACETAMINOPHEN
     Indication: Pyrexia
  14. NORVASC [Concomitant]
     Active Substance: AMLODIPINE BESYLATE
     Indication: Oropharyngeal pain
     Dosage: 10 MG, HS
     Route: 048
     Dates: start: 20211229
  15. NORVASC [Concomitant]
     Active Substance: AMLODIPINE BESYLATE
     Indication: Cough
  16. DILAUDID [Concomitant]
     Active Substance: HYDROMORPHONE HYDROCHLORIDE
     Indication: Pain
     Dosage: 0.5 MG,Q4H PRN
     Route: 042
     Dates: start: 20211229, end: 20211230
  17. MELATONIN [Concomitant]
     Active Substance: MELATONIN
     Indication: Sedation
     Dosage: 6 MG,HSPRN
     Route: 048
     Dates: start: 20211229
  18. ROXIDONE [Concomitant]
     Indication: Pain
     Dosage: 5-10 MG,Q4H PRN
     Route: 048
     Dates: start: 20211229
  19. MIRALAX [Concomitant]
     Active Substance: POLYETHYLENE GLYCOL 3350
     Indication: Constipation
     Dosage: 17 G,QD PRN
     Route: 048
     Dates: start: 20211229
  20. SENOKOT [Concomitant]
     Active Substance: SENNOSIDES
     Indication: Constipation
     Dosage: 8.6-50 MG, BID, PRN
     Route: 048
     Dates: start: 20211229
  21. PREDNISONE [Concomitant]
     Active Substance: PREDNISONE
     Indication: Neuritis cranial
     Dosage: 100 MG, QD
     Route: 048
     Dates: start: 20220103, end: 20220109
  22. PREDNISONE [Concomitant]
     Active Substance: PREDNISONE
     Indication: Therapeutic response delayed
     Dosage: 80 MG, QD
     Route: 048
     Dates: start: 20220110, end: 20220114

REACTIONS (14)
  - Abdominal distension [Recovering/Resolving]
  - Arthralgia [Recovered/Resolved]
  - Neuritis cranial [Unknown]
  - Facial paralysis [Unknown]
  - Nausea [Not Recovered/Not Resolved]
  - Joint swelling [Unknown]
  - Back pain [Unknown]
  - Facial paresis [Recovering/Resolving]
  - Sleep disorder due to a general medical condition [Unknown]
  - Blood creatinine increased [Recovered/Resolved]
  - Hypertransaminasaemia [Unknown]
  - Aspartate aminotransferase increased [Recovered/Resolved]
  - Alanine aminotransferase increased [Unknown]
  - Drug ineffective [Unknown]

NARRATIVE: CASE EVENT DATE: 20211228
